FAERS Safety Report 25311821 (Version 2)
Quarter: 2025Q2

REPORT INFORMATION
  Report Type: Spontaneous
  Country: US (occurrence: US)
  Receive Date: 20250514
  Receipt Date: 20250522
  Transmission Date: 20250716
  Serious: Yes (Hospitalization)
  Sender: TEVA
  Company Number: US-TEVA-VS-3253085

PATIENT
  Age: 60 Year
  Sex: Female
  Weight: 89.77 kg

DRUGS (3)
  1. AUSTEDO [Suspect]
     Active Substance: DEUTETRABENAZINE
     Indication: Tardive dyskinesia
     Route: 065
  2. AUSTEDO [Suspect]
     Active Substance: DEUTETRABENAZINE
     Indication: Tardive dyskinesia
     Dosage: FORM STRENGTH: 6 MG ANF 12 MG
     Route: 065
  3. AUSTEDO [Suspect]
     Active Substance: DEUTETRABENAZINE
     Indication: Tardive dyskinesia
     Route: 065

REACTIONS (5)
  - Tremor [Unknown]
  - Drug titration error [Unknown]
  - Drug intolerance [Unknown]
  - Off label use [Unknown]
  - Product dose omission issue [Unknown]
